FAERS Safety Report 7726772-6 (Version None)
Quarter: 2011Q3

REPORT INFORMATION
  Report Type: 
  Country: None (occurrence: None)
  Receive Date: 20110902
  Receipt Date: 20110822
  Transmission Date: 20111222
  Serious: Yes (Hospitalization)
  Sender: FDA-Public Use
  Company Number: US-GLAXOSMITHKLINE-A0929874A

PATIENT
  Sex: Female
  Weight: 55 kg

DRUGS (8)
  1. HERCEPTIN [Suspect]
     Indication: BREAST CANCER
     Route: 065
  2. AVAPRO [Concomitant]
  3. XELODA [Concomitant]
  4. ZOMETA [Concomitant]
  5. LUMIGAN [Concomitant]
  6. TYKERB [Suspect]
     Indication: BREAST CANCER
     Dosage: 1000MG PER DAY
     Route: 048
     Dates: start: 20090901, end: 20110530
  7. CALCIUM WITH VITAMIN D [Concomitant]
  8. FISH OIL [Concomitant]

REACTIONS (16)
  - METASTASES TO LIVER [None]
  - HEADACHE [None]
  - JAUNDICE CHOLESTATIC [None]
  - FATIGUE [None]
  - DIARRHOEA [None]
  - PYREXIA [None]
  - BILE DUCT OBSTRUCTION [None]
  - DERMATITIS [None]
  - PRURITUS [None]
  - BREAST CANCER [None]
  - OCULAR ICTERUS [None]
  - NAUSEA [None]
  - WEIGHT DECREASED [None]
  - HEPATIC ENZYME INCREASED [None]
  - BACTERAEMIA [None]
  - RASH [None]
